FAERS Safety Report 9741846 (Version 1)
Quarter: 2013Q4

REPORT INFORMATION
  Report Type: Spontaneous
  Country: DE (occurrence: DE)
  Receive Date: 20131210
  Receipt Date: 20131210
  Transmission Date: 20140711
  Serious: Yes (Other)
  Sender: FDA-Public Use
  Company Number: PHHY2013DE140677

PATIENT
  Age: 33 Year
  Sex: Female
  Weight: 76 kg

DRUGS (12)
  1. BUDESONIDE [Suspect]
     Dosage: 3 MG, Q8H
     Route: 048
  2. PREDNISOLONE [Suspect]
     Dosage: 7.5 MG, DAILY
     Route: 048
  3. PREDNISOLONE [Suspect]
     Dosage: 200 MG, UNK
     Route: 048
  4. RANITIDINE [Suspect]
     Dosage: 300 MG, Q12H
     Route: 048
  5. DIPHENHYDRAMINE [Suspect]
     Dosage: 50 MG, UNK
     Route: 048
  6. ONDANSETRON [Suspect]
     Dosage: 4 MG, UNK
     Route: 048
  7. FLUNITRAZEPAM [Suspect]
     Dosage: 0.5 MG, UNK
     Route: 048
  8. PROPOFOL [Suspect]
     Dosage: 200 MG, UNK
  9. PROPOFOL [Suspect]
     Dosage: 100 MG, UNK
  10. VITAMIN C [Suspect]
     Dosage: 750 MG, UNK
     Route: 048
  11. ISOFLURANE [Suspect]
  12. MIDAZOLAM [Suspect]
     Indication: SEDATION
     Dosage: 3 MG, UNK
     Route: 042

REACTIONS (2)
  - Stillbirth [Unknown]
  - Exposure during pregnancy [Unknown]
